FAERS Safety Report 16018886 (Version 2)
Quarter: 2019Q1

REPORT INFORMATION
  Report Type: Report from Study
  Country: US (occurrence: US)
  Receive Date: 20190228
  Receipt Date: 20190320
  Transmission Date: 20190418
  Serious: No
  Sender: FDA-Public Use
  Company Number: US-SA-2019SA054931

PATIENT
  Age: 44 Year
  Sex: Female

DRUGS (1)
  1. TERIFLUNOMIDE. [Suspect]
     Active Substance: TERIFLUNOMIDE
     Indication: MULTIPLE SCLEROSIS
     Dosage: 14 MG, QD
     Route: 048
     Dates: start: 20190128, end: 20190225

REACTIONS (6)
  - Headache [Recovered/Resolved]
  - Abdominal pain upper [Recovered/Resolved]
  - Burning sensation [Recovered/Resolved]
  - Diarrhoea [Unknown]
  - Fatigue [Unknown]
  - Acne [Unknown]

NARRATIVE: CASE EVENT DATE: 20190202
